FAERS Safety Report 25701802 (Version 1)
Quarter: 2025Q3

REPORT INFORMATION
  Report Type: Spontaneous
  Country: GB (occurrence: GB)
  Receive Date: 20250819
  Receipt Date: 20250819
  Transmission Date: 20251021
  Serious: Yes (Other)
  Sender: BRACCO
  Company Number: None

PATIENT

DRUGS (1)
  1. IOMERON [Suspect]
     Active Substance: IOMEPROL

REACTIONS (1)
  - Swelling [Recovered/Resolved]
